FAERS Safety Report 9355597 (Version 1)
Quarter: 2013Q2

REPORT INFORMATION
  Report Type: Report from Study
  Country: US (occurrence: US)
  Receive Date: 20130619
  Receipt Date: 20130619
  Transmission Date: 20140414
  Serious: Yes (Other)
  Sender: FDA-Public Use
  Company Number: US-EISAI INC-E7272-00152-CLI-US

PATIENT
  Age: 67 Year
  Sex: Female

DRUGS (5)
  1. ONTAK [Suspect]
     Indication: MYCOSIS FUNGOIDES
     Route: 041
  2. TARGRETIN CAPSULES [Suspect]
     Indication: MYCOSIS FUNGOIDES
     Route: 048
  3. DEXAMETHASONE [Concomitant]
     Indication: PREMEDICATION
  4. DIPHENHYDRAMINE [Concomitant]
     Indication: PREMEDICATION
     Dosage: 25MG TO 50 MG
     Route: 048
  5. ACETAMINOPHEN [Concomitant]
     Indication: PREMEDICATION
     Route: 048

REACTIONS (2)
  - Capillary leak syndrome [Unknown]
  - Leukopenia [Unknown]
